FAERS Safety Report 4757703-9 (Version None)
Quarter: 2005Q3

REPORT INFORMATION
  Report Type: 
  Country: None (occurrence: None)
  Receive Date: 20050831
  Receipt Date: 20050329
  Transmission Date: 20060218
  Serious: Yes (Hospitalization)
  Sender: FDA-Public Use
  Company Number: 2005CG00636

PATIENT
  Age: 82 Year
  Sex: Female

DRUGS (6)
  1. ATACAND [Suspect]
     Route: 048
     Dates: end: 20050221
  2. NOCTRAN [Suspect]
     Dosage: 10 + 0.75 + 7.5 MG QD
     Route: 048
     Dates: end: 20050215
  3. LIPANTHYL [Suspect]
     Route: 048
  4. EUPANTOL [Suspect]
     Route: 048
  5. AMLOR [Suspect]
     Route: 048
  6. NEXEN [Suspect]
     Route: 048

REACTIONS (9)
  - ANAEMIA [None]
  - ASTHENIA [None]
  - BLOOD CREATININE INCREASED [None]
  - C-REACTIVE PROTEIN INCREASED [None]
  - HAEMOGLOBIN DECREASED [None]
  - HYPERPROTEINAEMIA [None]
  - IMMUNOGLOBULINS DECREASED [None]
  - RED BLOOD CELL SEDIMENTATION RATE INCREASED [None]
  - SYSTEMIC LUPUS ERYTHEMATOSUS [None]
